FAERS Safety Report 15599102 (Version 4)
Quarter: 2019Q1

REPORT INFORMATION
  Report Type: Report from Study
  Country: US (occurrence: US)
  Receive Date: 20181108
  Receipt Date: 20190115
  Transmission Date: 20190417
  Serious: Yes (Death, Hospitalization, Other)
  Sender: FDA-Public Use
  Company Number: US-BAYER-2018-189555

PATIENT
  Age: 52 Year
  Sex: Male

DRUGS (5)
  1. STIVARGA [Suspect]
     Active Substance: REGORAFENIB
     Indication: COLON CANCER
     Dosage: DAILY DOSE 40 MG
     Dates: start: 20181205
  2. STIVARGA [Suspect]
     Active Substance: REGORAFENIB
     Indication: COLON CANCER
     Dosage: 120 MG, QD
     Route: 048
     Dates: start: 201810, end: 20181012
  3. STIVARGA [Suspect]
     Active Substance: REGORAFENIB
     Indication: COLON CANCER
     Dosage: DAILY DOSE 80 MG (3 WEEKS ON AND 1 WEEK OFF)
     Route: 048
     Dates: start: 20181003, end: 20181009
  4. STIVARGA [Suspect]
     Active Substance: REGORAFENIB
     Indication: COLON CANCER
     Dosage: 80 MG, QD
     Dates: start: 20190101
  5. STIVARGA [Suspect]
     Active Substance: REGORAFENIB
     Indication: COLON CANCER
     Dosage: DAILY DOSE 80 MG
     Route: 048
     Dates: start: 20181013, end: 20181013

REACTIONS (38)
  - Feeding disorder [Recovered/Resolved]
  - Stomatitis [Recovered/Resolved]
  - Off label use [None]
  - Tumour marker increased [Not Recovered/Not Resolved]
  - Hospitalisation [None]
  - Amnesia [None]
  - Decreased appetite [None]
  - Chromaturia [Recovered/Resolved]
  - Weight decreased [None]
  - Sleep talking [None]
  - Death [Fatal]
  - Malaise [None]
  - Urinary tract infection [Recovered/Resolved]
  - Confusional state [None]
  - Respiratory tract congestion [Recovered/Resolved]
  - Dysphagia [Recovered/Resolved]
  - Lip swelling [Recovered/Resolved]
  - Parosmia [None]
  - Pneumonia aspiration [Recovered/Resolved]
  - Drain placement [None]
  - Dysphonia [None]
  - Gastrooesophageal reflux disease [None]
  - Ammonia increased [Recovered/Resolved]
  - Rhinorrhoea [Recovered/Resolved]
  - Adverse drug reaction [None]
  - Dry mouth [None]
  - Fluid intake reduced [Recovered/Resolved]
  - Insomnia [None]
  - Oral pain [Recovered/Resolved]
  - Decubitus ulcer [Recovered/Resolved]
  - Sneezing [Recovered/Resolved]
  - Nausea [None]
  - Lethargy [None]
  - Eructation [None]
  - Ascites [None]
  - Fatigue [None]
  - Blood bilirubin increased [Recovering/Resolving]
  - Erythema [Recovered/Resolved]

NARRATIVE: CASE EVENT DATE: 2018
